FAERS Safety Report 21383300 (Version 1)
Quarter: 2022Q3

REPORT INFORMATION
  Report Type: Report from Study
  Country: US (occurrence: US)
  Receive Date: 20220927
  Receipt Date: 20220927
  Transmission Date: 20221026
  Serious: Yes (Hospitalization, Other)
  Sender: FDA-Public Use
  Company Number: US-ABBVIE-4130239

PATIENT
  Sex: Male

DRUGS (3)
  1. IMBRUVICA [Suspect]
     Active Substance: IBRUTINIB
     Indication: Mantle cell lymphoma
     Route: 048
     Dates: end: 2022
  2. ACYCLOVIR [Concomitant]
     Active Substance: ACYCLOVIR
     Indication: Product used for unknown indication
     Dosage: TWICE A DAY
  3. certavite senior [Concomitant]
     Indication: Product used for unknown indication

REACTIONS (3)
  - Stem cell transplant [Unknown]
  - Dizziness [Unknown]
  - Illness [Unknown]

NARRATIVE: CASE EVENT DATE: 20220101
